FAERS Safety Report 4765700-2 (Version None)
Quarter: 2005Q3

REPORT INFORMATION
  Report Type: 
  Country: None (occurrence: None)
  Receive Date: 20050912
  Receipt Date: 20050805
  Transmission Date: 20060218
  Serious: Yes (Death)
  Sender: FDA-Public Use
  Company Number: US-BRISTOL-MYERS SQUIBB COMPANY-13066642

PATIENT
  Age: 74 Year
  Sex: Male

DRUGS (1)
  1. MEGACE [Suspect]
     Indication: INCREASED APPETITE
     Route: 048
     Dates: start: 20040607, end: 20050419

REACTIONS (1)
  - MALIGNANT NEOPLASM PROGRESSION [None]
